FAERS Safety Report 7520038-5 (Version None)
Quarter: 2011Q2

REPORT INFORMATION
  Report Type: 
  Country: None (occurrence: None)
  Receive Date: 20110602
  Receipt Date: 20110520
  Transmission Date: 20111010
  Serious: Yes (Other)
  Sender: FDA-Public Use
  Company Number: CA-MYLANLABS-2011S1011303

PATIENT
  Age: 49 Year
  Sex: Female

DRUGS (3)
  1. FILGRASTIM [Concomitant]
  2. MELPHALAN HYDROCHLORIDE [Suspect]
     Indication: LIGHT CHAIN DISEASE
  3. DEXAMETHASONE [Concomitant]

REACTIONS (2)
  - BACTERAEMIA [None]
  - ENGRAFTMENT SYNDROME [None]
